FAERS Safety Report 4643475-5 (Version None)
Quarter: 2005Q2

REPORT INFORMATION
  Report Type: 
  Country: None (occurrence: None)
  Receive Date: 20050325
  Receipt Date: 20041227
  Transmission Date: 20051028
  Serious: No
  Sender: FDA-Public Use
  Company Number: IND-AE-04-SAN-014

PATIENT
  Age: 76 Year
  Sex: Female
  Weight: 63.05 kg

DRUGS (2)
  1. SANCTURA (TROPSIUM CHLORIDE TABLETS) [Suspect]
     Indication: HYPERTONIC BLADDER
     Dosage: 20MG-BID-ORAL
     Route: 048
     Dates: start: 20041029
  2. LORAZEPAM [Concomitant]

REACTIONS (1)
  - DRUG INEFFECTIVE [None]
